FAERS Safety Report 17312683 (Version 1)
Quarter: 2020Q1

REPORT INFORMATION
  Report Type: Other
  Country: DE (occurrence: DE)
  Receive Date: 20200123
  Receipt Date: 20200123
  Transmission Date: 20200409
  Serious: Yes (Death, Life-Threatening, Hospitalization, Other)
  Sender: FDA-Public Use
  Company Number: DE-CELLTRION INC.-2020DE018076

PATIENT

DRUGS (20)
  1. PREDNISONE. [Suspect]
     Active Substance: PREDNISONE
     Indication: DIFFUSE LARGE B-CELL LYMPHOMA
     Dosage: 100 MG, UNK
     Route: 042
     Dates: start: 20181029, end: 20181029
  2. VINCRISTINE [Suspect]
     Active Substance: VINCRISTINE
     Indication: DIFFUSE LARGE B-CELL LYMPHOMA
     Dosage: 1 MG, UNK
     Route: 041
     Dates: start: 20181030, end: 20181030
  3. UROMITEXAN [Concomitant]
     Active Substance: MESNA
     Indication: PROPHYLAXIS
     Dosage: 400 MG, UNK
     Route: 042
     Dates: start: 20181030, end: 20181030
  4. PREDNISONE. [Suspect]
     Active Substance: PREDNISONE
     Dosage: 500 MG, UNK
     Route: 048
     Dates: start: 20181030, end: 20181103
  5. SIMVASTATIN. [Concomitant]
     Active Substance: SIMVASTATIN
     Indication: HYPERTENSION
     Dosage: 20 MG, UNK
     Route: 048
  6. GRANISETRON [Concomitant]
     Active Substance: GRANISETRON
     Indication: PROPHYLAXIS
     Dosage: 2 MG, UNK
     Route: 048
     Dates: start: 20181030, end: 20181030
  7. CYCLOPHOSPHAMIDE. [Suspect]
     Active Substance: CYCLOPHOSPHAMIDE
     Indication: DIFFUSE LARGE B-CELL LYMPHOMA
     Dosage: 1312 MG, UNK
     Route: 041
     Dates: start: 20181030, end: 20181030
  8. LIPEGFILGRASTIM [Concomitant]
     Active Substance: LIPEGFILGRASTIM
     Indication: PROPHYLAXIS
     Dosage: 6 MG, UNK
     Route: 003
     Dates: start: 20181031, end: 20181031
  9. ENALAPRIL [Concomitant]
     Active Substance: ENALAPRIL
     Indication: HYPERTENSION
     Dosage: UNK
     Route: 048
  10. RITUXIMAB (UNKNOWN) [Suspect]
     Active Substance: RITUXIMAB
     Dosage: 656 MG, UNK
     Route: 041
     Dates: start: 20181029, end: 20181029
  11. PREDNISOLON [PREDNISOLONE] [Concomitant]
     Active Substance: PREDNISOLONE
     Indication: PROPHYLAXIS
     Dosage: 100 MG, UNK
     Route: 042
     Dates: start: 20181029, end: 20181029
  12. PARACETAMOL [Concomitant]
     Active Substance: ACETAMINOPHEN
     Indication: PROPHYLAXIS
     Dosage: 1000 MG, UNK
     Route: 048
     Dates: start: 20181029, end: 20181029
  13. CLEMASTIN [Concomitant]
     Active Substance: CLEMASTINE
     Indication: PROPHYLAXIS
     Dosage: 2 MG, UNK
     Route: 042
     Dates: start: 20181029, end: 20181029
  14. UROMITEXAN [Concomitant]
     Active Substance: MESNA
     Dosage: 600 MG, UNK
     Route: 048
     Dates: start: 20181030, end: 20181030
  15. RITUXIMAB (UNKNOWN) [Suspect]
     Active Substance: RITUXIMAB
     Indication: DIFFUSE LARGE B-CELL LYMPHOMA
     Dosage: 656 MG, UNK
     Route: 041
     Dates: start: 20181029, end: 20181029
  16. ASPIRIN. [Concomitant]
     Active Substance: ASPIRIN
     Indication: HYPERTENSION
     Dosage: UNK
     Route: 048
  17. DOXORUBICIN [Suspect]
     Active Substance: DOXORUBICIN
     Indication: DIFFUSE LARGE B-CELL LYMPHOMA
     Dosage: 85 MG, UNK
     Route: 041
     Dates: start: 20181030, end: 20181030
  18. OFLOXACIN RATIOPHARM [Concomitant]
     Indication: PROPHYLAXIS
     Dosage: UNK
     Route: 048
  19. BISOPROLOL [Concomitant]
     Active Substance: BISOPROLOL
     Indication: HYPERTENSION
     Dosage: 12.5 MG, UNK
     Route: 048
  20. PREDNISOLON [PREDNISOLONE] [Concomitant]
     Active Substance: PREDNISOLONE
     Dosage: 500 MG, UNK
     Route: 048
     Dates: start: 20181030, end: 20181103

REACTIONS (7)
  - Capillary leak syndrome [Fatal]
  - Cardiac failure [Fatal]
  - Atrial flutter [Not Recovered/Not Resolved]
  - Diarrhoea infectious [Fatal]
  - Respiratory failure [Not Recovered/Not Resolved]
  - Enterococcal sepsis [Fatal]
  - Urinary tract infection [Not Recovered/Not Resolved]

NARRATIVE: CASE EVENT DATE: 20181108
